FAERS Safety Report 23794671 (Version 1)
Quarter: 2024Q2

REPORT INFORMATION
  Report Type: Spontaneous
  Country: US (occurrence: US)
  Receive Date: 20240429
  Receipt Date: 20240429
  Transmission Date: 20240715
  Serious: No
  Sender: FDA-Public Use
  Company Number: US-HALEON-2170996

PATIENT
  Age: 8 Year

DRUGS (4)
  1. ADVIL [Suspect]
     Active Substance: IBUPROFEN
     Indication: Pain
     Dosage: TAKE 14.7 ML BY MOUTH FOUR TIMES DAILY AS NEEDED
     Route: 048
     Dates: start: 20240126
  2. ADVIL [Suspect]
     Active Substance: IBUPROFEN
     Indication: Pyrexia
  3. SULFAMETHOXAZOLE\TRIMETHOPRIM [Suspect]
     Active Substance: SULFAMETHOXAZOLE\TRIMETHOPRIM
     Indication: Pyrexia
     Dosage: DOSAGE: 20 MG/ML TAKE 14.7 ML BY MOUTH FOUR TIMES DAILY AS NEEDED FOR PAIN?OR FEVER
     Route: 048
  4. SULFAMETHOXAZOLE\TRIMETHOPRIM [Suspect]
     Active Substance: SULFAMETHOXAZOLE\TRIMETHOPRIM
     Indication: Pain

REACTIONS (1)
  - Inappropriate schedule of product administration [Unknown]

NARRATIVE: CASE EVENT DATE: 20240424
